FAERS Safety Report 5530567-1 (Version None)
Quarter: 2007Q4

REPORT INFORMATION
  Report Type: 
  Country: None (occurrence: None)
  Receive Date: 20071130
  Receipt Date: 20071121
  Transmission Date: 20080405
  Serious: Yes (Death)
  Sender: FDA-Public Use
  Company Number: JP-AVENTIS-200712968JP

PATIENT
  Age: 72 Year
  Sex: Male
  Weight: 53.8 kg

DRUGS (8)
  1. TAXOTERE [Suspect]
     Indication: OESOPHAGEAL SQUAMOUS CELL CARCINOMA
     Route: 041
     Dates: start: 20050228, end: 20050401
  2. KYTRIL                             /01178101/ [Concomitant]
     Indication: PREMEDICATION
     Dates: start: 20050228, end: 20050401
  3. LOXONIN                            /00890701/ [Concomitant]
     Indication: PAIN
  4. FAMOTIDINE [Concomitant]
  5. ANPEC                              /00014302/ [Concomitant]
     Indication: PAIN
  6. MAGLAX [Concomitant]
  7. LAXOBERON [Concomitant]
  8. NEW LECICARBON [Concomitant]

REACTIONS (1)
  - INTERSTITIAL LUNG DISEASE [None]
